FAERS Safety Report 6031786-0 (Version None)
Quarter: 2009Q1

REPORT INFORMATION
  Report Type: 
  Country: None (occurrence: None)
  Receive Date: 20090108
  Receipt Date: 20090106
  Transmission Date: 20090719
  Serious: No
  Sender: FDA-Public Use
  Company Number: US-JNJFOC-20090100630

PATIENT
  Sex: Female
  Weight: 57.61 kg

DRUGS (9)
  1. FENTANYL TRANSDERMAL SYSTEM [Suspect]
     Route: 062
  2. FENTANYL TRANSDERMAL SYSTEM [Suspect]
     Route: 062
  3. FENTANYL TRANSDERMAL SYSTEM [Suspect]
     Indication: BACK PAIN
     Route: 062
  4. XYZAL [Concomitant]
     Indication: MULTIPLE ALLERGIES
     Dosage: DOSAGES : AS NEEDED
     Route: 048
  5. VALIUM [Concomitant]
     Indication: MUSCLE SPASMS
     Route: 048
  6. ATENOLOL [Concomitant]
     Indication: HYPERTENSION
     Route: 048
  7. ESTRADIOL [Concomitant]
     Indication: HORMONE REPLACEMENT THERAPY
     Route: 048
  8. LUNESTA [Concomitant]
     Indication: SLEEP DISORDER
     Route: 048
  9. SENOKOT [Concomitant]
     Indication: CONSTIPATION
     Dosage: DOSAGE : AS NEEDED
     Route: 048

REACTIONS (7)
  - ABNORMAL DREAMS [None]
  - APPLICATION SITE IRRITATION [None]
  - DECREASED APPETITE [None]
  - DRUG EFFECT DECREASED [None]
  - INCORRECT DRUG ADMINISTRATION DURATION [None]
  - PRODUCT QUALITY ISSUE [None]
  - WEIGHT DECREASED [None]
